FAERS Safety Report 4631020-X (Version None)
Quarter: 2005Q2

REPORT INFORMATION
  Report Type: 
  Country: None (occurrence: None)
  Receive Date: 20050406
  Receipt Date: 20050406
  Transmission Date: 20051028
  Serious: Yes (Other)
  Sender: FDA-Public Use
  Company Number: None

PATIENT
  Sex: Female
  Weight: 72.5755 kg

DRUGS (6)
  1. FOSAMAX [Suspect]
     Indication: BONE DISORDER
     Dosage: 70 MG ONCE WEEKLY ORALLY [ 5 DOSES]
     Route: 048
     Dates: start: 20050206, end: 20050306
  2. POTASSIUM CHLORIDE [Concomitant]
  3. PREMARIN H-C VAGINAL CREAM [Concomitant]
  4. MAXZIDE [Concomitant]
  5. CALCIUM GLUCONATE [Concomitant]
  6. MULTIVITAMIN [Concomitant]

REACTIONS (4)
  - FLUID RETENTION [None]
  - OEDEMA PERIPHERAL [None]
  - PAIN [None]
  - STOMACH DISCOMFORT [None]
